FAERS Safety Report 6268378-4 (Version None)
Quarter: 2009Q3

REPORT INFORMATION
  Report Type: 
  Country: None (occurrence: None)
  Receive Date: 20090715
  Receipt Date: 20090624
  Transmission Date: 20100115
  Serious: Yes (Hospitalization)
  Sender: FDA-Public Use
  Company Number: AU-ROCHE-626650

PATIENT
  Sex: Male
  Weight: 68.8 kg

DRUGS (13)
  1. CAPECITABINE [Suspect]
     Indication: COLON CANCER
     Route: 048
     Dates: start: 20090217
  2. CAPECITABINE [Suspect]
     Dosage: CURRENT CYCLE: 2; DATE OF LAST DOSE PRIOR TO SAE: 23 MARCH 2009.
     Route: 048
     Dates: end: 20090427
  3. BEVACIZUMAB [Suspect]
     Route: 042
     Dates: start: 20090217
  4. BEVACIZUMAB [Suspect]
     Dosage: CURRENT CYCLE: 2; DATE OF LAST DOSE PRIOR TO SAE: 10 MAR 2009.
     Route: 042
     Dates: end: 20090427
  5. IMODIUM [Concomitant]
     Indication: DIARRHOEA
     Route: 048
     Dates: start: 20090329
  6. DEXTROSE [Concomitant]
     Indication: DEHYDRATION
     Route: 042
     Dates: start: 20090330
  7. SINEMET [Concomitant]
     Indication: PARKINSON'S DISEASE
     Dates: start: 20050101
  8. ERYTHROMYCIN [Concomitant]
     Dates: start: 20090328
  9. OXYCONTIN [Concomitant]
     Dates: start: 20090328
  10. VALIUM [Concomitant]
     Indication: ANXIETY
     Route: 048
     Dates: start: 20090328
  11. ENDONE [Concomitant]
     Indication: BACK PAIN
     Route: 048
     Dates: start: 20090402
  12. PREGABALIN [Concomitant]
     Indication: PARKINSON'S DISEASE
     Dosage: REPORTED DRUG: PREGABALIN(LYRICA)
     Route: 048
     Dates: start: 20090416
  13. ATORVASTATIN CALCIUM [Concomitant]
     Dosage: REPORTED DRUG: ATORVASTATIN(LIPITOR)
     Route: 048
     Dates: start: 20090416

REACTIONS (3)
  - GASTROINTESTINAL HAEMORRHAGE [None]
  - INTESTINAL OBSTRUCTION [None]
  - PULMONARY EMBOLISM [None]
